FAERS Safety Report 9121976 (Version 1)
Quarter: 2013Q1

REPORT INFORMATION
  Report Type: Spontaneous
  Country: IT (occurrence: IT)
  Receive Date: 20130114
  Receipt Date: 20130114
  Transmission Date: 20140127
  Serious: Yes (Hospitalization)
  Sender: FDA-Public Use
  Company Number: IT-ASTRAZENECA-2013SE00802

PATIENT
  Age: 84 Year
  Sex: Male

DRUGS (7)
  1. SEROQUEL [Suspect]
     Indication: DEPRESSION
     Dosage: 25 MG FILM COATED TABLETS 1 TABLET DAILY
     Route: 048
     Dates: start: 20110301, end: 20121119
  2. ZOLOFT (SERTRALINE) [Suspect]
     Indication: DEPRESSION
     Route: 048
     Dates: start: 20110301
  3. COUMADIN [Suspect]
     Indication: ATRIAL FIBRILLATION
     Route: 048
     Dates: start: 20110501
  4. LASIX (FUROSEMIDE) [Concomitant]
     Route: 048
  5. LOVINACOR (LOVASTATINA) [Concomitant]
     Route: 048
  6. MINITRAN (NITROGLYCERINE) [Concomitant]
     Dosage: 10 MG/24 H 1 DF
     Route: 062
  7. CONGESCOR (BISOPROLOL) [Concomitant]
     Route: 048

REACTIONS (5)
  - International normalised ratio increased [Unknown]
  - Subcutaneous haematoma [Unknown]
  - Fall [Unknown]
  - Balance disorder [Unknown]
  - Gait disturbance [Unknown]
